FAERS Safety Report 9934631 (Version 1)
Quarter: 2014Q1

REPORT INFORMATION
  Report Type: Spontaneous
  Country: US (occurrence: US)
  Receive Date: 20140228
  Receipt Date: 20140228
  Transmission Date: 20141002
  Serious: No
  Sender: FDA-Public Use
  Company Number: US-ASTRAZENECA-2013SE77914

PATIENT
  Sex: Female

DRUGS (3)
  1. TOPROL XL [Suspect]
     Indication: PALPITATIONS
     Route: 048
     Dates: start: 201211
  2. TOPROL XL [Suspect]
     Indication: HEART RATE IRREGULAR
     Route: 048
     Dates: start: 201211
  3. GENERIC MEDICATION [Suspect]
     Route: 065

REACTIONS (4)
  - Heart rate increased [Unknown]
  - Coeliac disease [Unknown]
  - Heart rate irregular [Unknown]
  - Off label use [Unknown]
